FAERS Safety Report 7555520-8 (Version None)
Quarter: 2011Q2

REPORT INFORMATION
  Report Type: 
  Country: None (occurrence: None)
  Receive Date: 20110617
  Receipt Date: 20030320
  Transmission Date: 20111010
  Serious: Yes (Hospitalization, Other)
  Sender: FDA-Public Use
  Company Number: PHBS2002CA12379

PATIENT
  Sex: Male

DRUGS (11)
  1. CATAPRES [Suspect]
     Dosage: 0.1 UNK, QD
  2. PRAVACHOL [Concomitant]
  3. CATAPRES [Suspect]
     Dosage: 0.1, BID
     Dates: start: 20021007, end: 20021113
  4. TENORMIN [Concomitant]
     Dosage: 50 MG, BID
     Dates: start: 20021004
  5. ADALAT CC [Concomitant]
     Dosage: 30 MG, QD
  6. TENORMIN [Concomitant]
     Dosage: 50 MG 2QAM
  7. ZANTAC [Concomitant]
     Dates: end: 20021023
  8. DIOVAN [Suspect]
     Indication: HYPERTENSION
     Dosage: 80 MG, ONCE/SINGLE
     Route: 048
     Dates: start: 20021007
  9. SYNTHROID [Concomitant]
  10. ASPIRIN [Concomitant]
  11. ZYLOPRIM [Concomitant]

REACTIONS (9)
  - CEREBROVASCULAR ACCIDENT [None]
  - HEADACHE [None]
  - INTERVERTEBRAL DISC DEGENERATION [None]
  - HYPERTENSION [None]
  - MUSCLE TIGHTNESS [None]
  - FLUSHING [None]
  - DIZZINESS [None]
  - NECK PAIN [None]
  - DYSPEPSIA [None]
